FAERS Safety Report 7516190-8 (Version None)
Quarter: 2011Q2

REPORT INFORMATION
  Report Type: 
  Country: None (occurrence: None)
  Receive Date: 20110601
  Receipt Date: 20110526
  Transmission Date: 20111010
  Serious: Yes (Death, Other)
  Sender: FDA-Public Use
  Company Number: ID-ROCHE-779855

PATIENT

DRUGS (1)
  1. TOCILIZUMAB [Suspect]
     Indication: JUVENILE ARTHRITIS
     Route: 042

REACTIONS (2)
  - HISTIOCYTOSIS HAEMATOPHAGIC [None]
  - INFECTION [None]
